FAERS Safety Report 5514367-4 (Version None)
Quarter: 2007Q4

REPORT INFORMATION
  Report Type: 
  Country: None (occurrence: None)
  Receive Date: 20071113
  Receipt Date: 20070426
  Transmission Date: 20080405
  Serious: No
  Sender: FDA-Public Use
  Company Number: A0648912A

PATIENT
  Age: 81 Year
  Sex: Male

DRUGS (8)
  1. COREG [Suspect]
     Indication: CARDIOMYOPATHY
     Dosage: 25MG TWICE PER DAY
     Route: 048
     Dates: start: 20050101
  2. ACCUPRIL [Concomitant]
  3. LANOXIN [Concomitant]
  4. ASPIRIN [Concomitant]
  5. COUMADIN [Concomitant]
  6. PROSCAR [Concomitant]
  7. LEVOTHYROXINE SODIUM [Concomitant]
  8. RANITIDINE [Concomitant]

REACTIONS (1)
  - FATIGUE [None]
